FAERS Safety Report 15051685 (Version 1)
Quarter: 2018Q2

REPORT INFORMATION
  Report Type: Spontaneous
  Country: US (occurrence: US)
  Receive Date: 20180622
  Receipt Date: 20180622
  Transmission Date: 20180711
  Serious: Yes (Other)
  Sender: FDA-Public Use
  Company Number: US-FRESENIUS KABI-FK201807100

PATIENT
  Sex: Female

DRUGS (1)
  1. CLADRIBINE (MANUFACTURER UNKNOWN) [Suspect]
     Active Substance: CLADRIBINE
     Indication: HAIRY CELL LEUKAEMIA
     Route: 065
     Dates: start: 2016

REACTIONS (1)
  - Lung infiltration [Unknown]
